FAERS Safety Report 6247198-0 (Version None)
Quarter: 2009Q2

REPORT INFORMATION
  Report Type: 
  Country: None (occurrence: None)
  Receive Date: 20090624
  Receipt Date: 20090624
  Transmission Date: 20091009
  Serious: No
  Sender: FDA-Public Use
  Company Number: None

PATIENT
  Age: 52 Year
  Sex: Male
  Weight: 105 kg

DRUGS (1)
  1. SIMVASTATIN [Suspect]
     Dosage: 20 MG QHS ORAL
     Route: 048
     Dates: start: 20090504, end: 20090511

REACTIONS (2)
  - FATIGUE [None]
  - MUSCULAR WEAKNESS [None]
